FAERS Safety Report 4744821-4 (Version None)
Quarter: 2005Q3

REPORT INFORMATION
  Report Type: 
  Country: None (occurrence: None)
  Receive Date: 20050815
  Receipt Date: 20050216
  Transmission Date: 20060218
  Serious: Yes (Death)
  Sender: FDA-Public Use
  Company Number: US-GLAXOSMITHKLINE-A0546782A

PATIENT
  Age: 9 Year
  Sex: Male

DRUGS (4)
  1. SEREVENT [Suspect]
     Indication: ASTHMA
     Dosage: 2PUFF TWICE PER DAY
     Route: 055
     Dates: start: 19990927
  2. FLOVENT [Concomitant]
     Indication: ASTHMA
     Dosage: 2PUFF TWICE PER DAY
  3. ALBUTEROL [Concomitant]
     Indication: ASTHMA
  4. ALBUTEROL [Concomitant]
     Dosage: 2PUFF AS REQUIRED

REACTIONS (18)
  - ACUTE RESPIRATORY FAILURE [None]
  - ASTHMA [None]
  - ATELECTASIS [None]
  - CARDIAC ARREST [None]
  - CARDIO-RESPIRATORY ARREST [None]
  - CYANOSIS [None]
  - DEPRESSED LEVEL OF CONSCIOUSNESS [None]
  - DIARRHOEA [None]
  - DYSPNOEA [None]
  - FALL [None]
  - LOSS OF CONSCIOUSNESS [None]
  - LUNG INFILTRATION [None]
  - ORAL DISCHARGE [None]
  - PHARYNGITIS STREPTOCOCCAL [None]
  - RESPIRATORY FAILURE [None]
  - RHINORRHOEA [None]
  - TRACHEOBRONCHITIS [None]
  - VOMITING [None]
